FAERS Safety Report 5217869-3 (Version None)
Quarter: 2007Q1

REPORT INFORMATION
  Report Type: 
  Country: None (occurrence: None)
  Receive Date: 20070124
  Receipt Date: 20070110
  Transmission Date: 20070707
  Serious: Yes (Death)
  Sender: FDA-Public Use
  Company Number: US-SHR-US-2006-023667

PATIENT
  Age: 56 Year
  Sex: Female

DRUGS (2)
  1. BETASERON [Suspect]
     Indication: PROGRESSIVE MULTIPLE SCLEROSIS
     Dosage: 4 MIU, EVERY 2D, TITRATION
     Route: 058
     Dates: start: 19940201, end: 19940301
  2. BETASERON [Suspect]
     Route: 058
     Dates: start: 20021031, end: 20030815

REACTIONS (1)
  - CEREBROVASCULAR ACCIDENT [None]
